FAERS Safety Report 5491269-3 (Version None)
Quarter: 2007Q4

REPORT INFORMATION
  Report Type: 
  Country: None (occurrence: None)
  Receive Date: 20071019
  Receipt Date: 20071010
  Transmission Date: 20080405
  Serious: Yes (Other)
  Sender: FDA-Public Use
  Company Number: US-GENENTECH-249220

PATIENT
  Sex: Male
  Weight: 22.676 kg

DRUGS (1)
  1. NUTROPIN AQ [Suspect]
     Indication: HYPOTHALAMO-PITUITARY DISORDER
     Dosage: 0.9 MG, QD
     Route: 058
     Dates: start: 20071002

REACTIONS (2)
  - ANGINA PECTORIS [None]
  - NIGHT SWEATS [None]
